FAERS Safety Report 4517688-7 (Version None)
Quarter: 2004Q4

REPORT INFORMATION
  Report Type: 
  Country: None (occurrence: None)
  Receive Date: 20041202
  Receipt Date: 20041202
  Transmission Date: 20050328
  Serious: Yes (Hospitalization)
  Sender: FDA-Public Use
  Company Number: None

PATIENT
  Age: 67 Year
  Sex: Male
  Weight: 65.7716 kg

DRUGS (15)
  1. GEMCITABINE [Suspect]
     Indication: PANCREATIC CARCINOMA METASTATIC
     Dosage: 1000 MG/M2 IV = 1800 MG
     Route: 042
     Dates: start: 20040628
  2. GEMCITABINE [Suspect]
     Indication: PANCREATIC CARCINOMA METASTATIC
     Dosage: 1000 MG/M2 IV = 1800 MG
     Route: 042
     Dates: start: 20040706
  3. GEMCITABINE [Suspect]
     Indication: PANCREATIC CARCINOMA METASTATIC
     Dosage: 1000 MG/M2 IV = 1800 MG
     Route: 042
     Dates: start: 20040712
  4. GEMCITABINE [Suspect]
     Indication: PANCREATIC CARCINOMA METASTATIC
     Dosage: 1000 MG/M2 IV = 1800 MG
     Route: 042
     Dates: start: 20040726
  5. GEMCITABINE [Suspect]
     Indication: PANCREATIC CARCINOMA METASTATIC
     Dosage: 1000 MG/M2 IV = 1800 MG
     Route: 042
     Dates: start: 20040802
  6. GEMCITABINE [Suspect]
     Indication: PANCREATIC CARCINOMA METASTATIC
     Dosage: 1000 MG/M2 IV = 1800 MG
     Route: 042
     Dates: start: 20040809
  7. GEMCITABINE [Suspect]
     Indication: PANCREATIC CARCINOMA METASTATIC
     Dosage: 1000 MG/M2 IV = 1800 MG
     Route: 042
     Dates: start: 20040823
  8. ANZEMET [Concomitant]
  9. NEXIUM [Concomitant]
  10. CO-ENZYME 10 [Concomitant]
  11. MG N3 [Concomitant]
  12. PANCREATIC ENZYMES [Concomitant]
  13. ZOCOR [Concomitant]
  14. FLOMAX [Concomitant]
  15. ARANESP [Concomitant]

REACTIONS (1)
  - CHEST PAIN [None]
